FAERS Safety Report 21659174 (Version 2)
Quarter: 2022Q4

REPORT INFORMATION
  Report Type: Report from Study
  Country: US (occurrence: None)
  Receive Date: 20221129
  Receipt Date: 20221206
  Transmission Date: 20230113
  Serious: Yes (Hospitalization)
  Sender: FDA-Public Use
  Company Number: US-Eisai Medical Research-EC-2022-127105

PATIENT
  Age: 21 Year
  Sex: Male

DRUGS (2)
  1. LENVIMA [Suspect]
     Active Substance: LENVATINIB
     Indication: Renal cancer
     Route: 048
     Dates: start: 20221009, end: 202211
  2. DEXAMETHASONE [Concomitant]
     Active Substance: DEXAMETHASONE

REACTIONS (9)
  - Thrombosis [Unknown]
  - Decreased appetite [Unknown]
  - Dysphonia [Unknown]
  - Productive cough [Unknown]
  - Constipation [Unknown]
  - Ageusia [Unknown]
  - Gastric haemorrhage [Unknown]
  - Full blood count abnormal [Unknown]
  - Malignant neoplasm progression [Unknown]

NARRATIVE: CASE EVENT DATE: 20221001
